FAERS Safety Report 22605949 (Version 6)
Quarter: 2024Q1

REPORT INFORMATION
  Report Type: Spontaneous
  Country: FR (occurrence: FR)
  Receive Date: 20230615
  Receipt Date: 20240214
  Transmission Date: 20240410
  Serious: Yes (Hospitalization, Other)
  Sender: FDA-Public Use
  Company Number: None

PATIENT
  Age: 75 Year
  Sex: Female
  Weight: 64.1 kg

DRUGS (7)
  1. DULOXETINE HYDROCHLORIDE [Suspect]
     Active Substance: DULOXETINE HYDROCHLORIDE
     Indication: Depression
     Dosage: UNK UNK, UNKNOWN
     Route: 048
     Dates: end: 20230517
  2. TRIMEPRAZINE [Suspect]
     Active Substance: TRIMEPRAZINE
     Indication: Insomnia
     Dosage: UNK UNK, UNKNOWN
     Route: 048
     Dates: end: 20230517
  3. LORMETAZEPAM [Suspect]
     Active Substance: LORMETAZEPAM
     Indication: Insomnia
     Dosage: UNK UNK, UNKNOWN
     Route: 048
     Dates: end: 20230517
  4. LETROZOLE [Suspect]
     Active Substance: LETROZOLE
     Indication: Breast cancer
     Dosage: UNK UNK, UNKNOWN
     Route: 048
  5. TRAMADOL HYDROCHLORIDE [Suspect]
     Active Substance: TRAMADOL HYDROCHLORIDE
     Indication: Product used for unknown indication
     Dosage: UNK UNK, UNKNOWN
     Route: 048
     Dates: end: 20230517
  6. LEVOTHYROXINE SODIUM [Suspect]
     Active Substance: LEVOTHYROXINE SODIUM
     Indication: Hypothyroidism
     Dosage: 125 UG, UNKNOWN
     Route: 048
  7. PANTOPRAZOLE SODIUM [Suspect]
     Active Substance: PANTOPRAZOLE SODIUM
     Indication: Prophylaxis against gastrointestinal ulcer
     Dosage: UNK UNK, UNKNOWN
     Route: 048
     Dates: end: 20230517

REACTIONS (3)
  - Poisoning deliberate [Recovered/Resolved]
  - Lipase increased [Recovered/Resolved]
  - Overdose [Unknown]

NARRATIVE: CASE EVENT DATE: 20230517
